FAERS Safety Report 13833170 (Version 1)
Quarter: 2017Q3

REPORT INFORMATION
  Report Type: Spontaneous
  Country: US (occurrence: US)
  Receive Date: 20170803
  Receipt Date: 20170803
  Transmission Date: 20171127
  Serious: No
  Sender: FDA-Public Use
  Company Number: None

PATIENT
  Age: 31 Year
  Sex: Female

DRUGS (1)
  1. ENBREL [Suspect]
     Active Substance: ETANERCEPT
     Dosage: DOSE - 50 MG/ML
     Route: 058
     Dates: start: 20161102

REACTIONS (1)
  - Injection site pain [None]

NARRATIVE: CASE EVENT DATE: 20170707
